FAERS Safety Report 14797970 (Version 1)
Quarter: 2018Q2

REPORT INFORMATION
  Report Type: Spontaneous
  Country: NL (occurrence: NL)
  Receive Date: 20180424
  Receipt Date: 20180424
  Transmission Date: 20180711
  Serious: Yes (Life-Threatening)
  Sender: FDA-Public Use
  Company Number: NL-TEVA-2018-NL-885315

PATIENT
  Age: 74 Year
  Sex: Female
  Weight: 55 kg

DRUGS (6)
  1. CODEINE 10MG [Concomitant]
     Dosage: ZN 1 DD 1
  2. ATENOLOL. [Suspect]
     Active Substance: ATENOLOL
     Indication: HYPERTENSION
     Dosage: 1DD1
     Dates: start: 20170101
  3. AMOXICILLINE 500MG [Concomitant]
     Dosage: 3 DD 1
     Dates: start: 20180214
  4. PRIADEL (LITHIUMCARBONAAT TABLET MGA 400MG) ORAAL 600MG/DAG [Interacting]
     Active Substance: LITHIUM CARBONATE
     Indication: DEPRESSION
     Dosage: 600 MILLIGRAM DAILY; 1DD1.5
     Dates: start: 20170101
  5. VENLAFAXINE [Concomitant]
     Active Substance: VENLAFAXINE HYDROCHLORIDE
     Dosage: 150 MILLIGRAM DAILY; 1 DD 1
  6. ENALAPRIL 20MG [Concomitant]
     Active Substance: ENALAPRIL
     Dosage: 20 MILLIGRAM DAILY; 1 DD 1

REACTIONS (2)
  - Drug interaction [Recovering/Resolving]
  - Cardiac arrest [Recovering/Resolving]

NARRATIVE: CASE EVENT DATE: 20180215
